APPROVED DRUG PRODUCT: FLUPHENAZINE DECANOATE
Active Ingredient: FLUPHENAZINE DECANOATE
Strength: 25MG/ML
Dosage Form/Route: INJECTABLE;INJECTION
Application: A074531 | Product #001 | TE Code: AO
Applicant: HIKMA PHARMACEUTICALS USA INC
Approved: Aug 30, 1996 | RLD: No | RS: No | Type: RX